FAERS Safety Report 5892339-8 (Version None)
Quarter: 2008Q3

REPORT INFORMATION
  Report Type: 
  Country: None (occurrence: None)
  Receive Date: 20080919
  Receipt Date: 20080919
  Transmission Date: 20090109
  Serious: Yes (Other)
  Sender: FDA-Public Use
  Company Number: None

PATIENT
  Sex: Female
  Weight: 73.0291 kg

DRUGS (6)
  1. ESTRADIOL [Suspect]
     Indication: MENOPAUSAL SYMPTOMS
     Dosage: 1 1/2 MG NIGHTLY SL
     Route: 060
     Dates: start: 20070101, end: 20080101
  2. ESTRADIOL [Suspect]
  3. ESTRACE [Suspect]
  4. SYNTHROID [Concomitant]
  5. LUNESTA [Concomitant]
  6. COMPOUNDED NAL TESTOSTERONE [Concomitant]

REACTIONS (4)
  - DRUG LEVEL DECREASED [None]
  - HEADACHE [None]
  - PHARMACEUTICAL PRODUCT COMPLAINT [None]
  - TREATMENT FAILURE [None]
